FAERS Safety Report 16868770 (Version 2)
Quarter: 2019Q4

REPORT INFORMATION
  Report Type: Report from Study
  Country: None (occurrence: US)
  Receive Date: 20190930
  Receipt Date: 20191027
  Transmission Date: 20200122
  Serious: Yes (Hospitalization, Other)
  Sender: FDA-Public Use
  Company Number: US-ABBVIE-19K-163-2941264-00

PATIENT
  Age: 60 Year
  Sex: Female

DRUGS (1)
  1. HUMIRA [Suspect]
     Active Substance: ADALIMUMAB
     Indication: PSORIASIS
     Route: 058
     Dates: start: 201603, end: 20191010

REACTIONS (3)
  - Confusional state [Unknown]
  - Dizziness [Unknown]
  - Meningioma [Recovered/Resolved]

NARRATIVE: CASE EVENT DATE: 201901
